FAERS Safety Report 4498934-5 (Version None)
Quarter: 2004Q3

REPORT INFORMATION
  Report Type: 
  Country: None (occurrence: None)
  Receive Date: 20040927
  Receipt Date: 20040622
  Transmission Date: 20050211
  Serious: No
  Sender: FDA-Public Use
  Company Number: USA040670837

PATIENT
  Age: 14 Year
  Sex: Female
  Weight: 57 kg

DRUGS (6)
  1. STRATTERA [Suspect]
     Indication: ATTENTION DEFICIT/HYPERACTIVITY DISORDER
     Dosage: 1O MG
  2. PROZAC [Suspect]
  3. ADDERALL 10 [Concomitant]
  4. WELLBUTRIN [Concomitant]
  5. CLONAZEPAM [Concomitant]
  6. LAMICTAL [Concomitant]

REACTIONS (1)
  - EPISTAXIS [None]
